FAERS Safety Report 20616280 (Version 8)
Quarter: 2022Q3

REPORT INFORMATION
  Report Type: Report from Study
  Country: US (occurrence: US)
  Receive Date: 20220321
  Receipt Date: 20220808
  Transmission Date: 20221027
  Serious: Yes (Other)
  Sender: FDA-Public Use
  Company Number: NVSC2022US063045

PATIENT
  Sex: Female

DRUGS (2)
  1. ENTRESTO [Suspect]
     Active Substance: SACUBITRIL\VALSARTAN
     Indication: Product used for unknown indication
     Dosage: UNK
     Route: 065
     Dates: start: 202202
  2. ENTRESTO [Suspect]
     Active Substance: SACUBITRIL\VALSARTAN
     Dosage: 0.5 DOSAGE FORM, BID (1/2 PILL IN MORNING AND 1/2 IN EVENING)
     Route: 065

REACTIONS (8)
  - Parkinson^s disease [Unknown]
  - Limb deformity [Unknown]
  - Gait disturbance [Unknown]
  - Eye disorder [Unknown]
  - Dizziness [Unknown]
  - Hypotension [Unknown]
  - Disturbance in attention [Unknown]
  - Wrong technique in product usage process [Unknown]
